FAERS Safety Report 5586915-X (Version None)
Quarter: 2008Q1

REPORT INFORMATION
  Report Type: 
  Country: None (occurrence: None)
  Receive Date: 20080108
  Receipt Date: 20080108
  Transmission Date: 20080703
  Serious: Yes (Life-Threatening)
  Sender: FDA-Public Use
  Company Number: None

PATIENT
  Age: 71 Year
  Sex: Female
  Weight: 70.3 kg

DRUGS (9)
  1. CHANTIX [Suspect]
     Indication: SMOKING CESSATION THERAPY
     Dosage: 0.5 MG BID PO
     Route: 048
  2. LASIX [Concomitant]
  3. GLUCOTROL [Concomitant]
  4. ZAROXOLYN [Concomitant]
  5. PRINIVIL [Concomitant]
  6. DIGOXIN [Concomitant]
  7. K-DUR 10 [Concomitant]
  8. ASPIRIN [Concomitant]
  9. ACTOS [Concomitant]

REACTIONS (4)
  - ACUTE RESPIRATORY FAILURE [None]
  - ANGIOEDEMA [None]
  - CONFUSIONAL STATE [None]
  - DYSARTHRIA [None]
